FAERS Safety Report 9515812 (Version 1)
Quarter: 2013Q3

REPORT INFORMATION
  Report Type: Spontaneous
  Country: GB (occurrence: None)
  Receive Date: 20130909
  Receipt Date: 20130909
  Transmission Date: 20140515
  Serious: Yes (Other)
  Sender: FDA-Public Use
  Company Number: 1235187

PATIENT
  Age: 71 Year
  Sex: Female
  Weight: 82 kg

DRUGS (4)
  1. TAMOXIFEN [Suspect]
  2. VISCOTEARS [Concomitant]
  3. DIPROBASE [Concomitant]
  4. PRIMOVATE [Concomitant]

REACTIONS (3)
  - Lip swelling [None]
  - Oral discomfort [None]
  - Pruritus genital [None]
